FAERS Safety Report 6359127-X (Version None)
Quarter: 2009Q3

REPORT INFORMATION
  Report Type: 
  Country: None (occurrence: None)
  Receive Date: 20090917
  Receipt Date: 20070830
  Transmission Date: 20100115
  Serious: Yes (Other)
  Sender: FDA-Public Use
  Company Number: US-ASTRAZENECA-2006UW23252

PATIENT
  Age: 10530 Day
  Sex: Female
  Weight: 200.7 kg

DRUGS (14)
  1. SEROQUEL [Suspect]
     Indication: POST-TRAUMATIC STRESS DISORDER
     Route: 048
     Dates: start: 20040301
  2. SEROQUEL [Suspect]
     Indication: MAJOR DEPRESSION
     Route: 048
     Dates: start: 20040301
  3. SEROQUEL [Suspect]
     Indication: SLEEP DISORDER
     Route: 048
     Dates: start: 20040301
  4. SEROQUEL [Suspect]
     Dosage: 200 - 300 MG
     Route: 048
     Dates: start: 20040701
  5. SEROQUEL [Suspect]
     Dosage: 200 - 300 MG
     Route: 048
     Dates: start: 20040701
  6. SEROQUEL [Suspect]
     Dosage: 200 - 300 MG
     Route: 048
     Dates: start: 20040701
  7. SEROQUEL [Suspect]
     Route: 048
     Dates: start: 20040828
  8. SEROQUEL [Suspect]
     Route: 048
     Dates: start: 20040828
  9. SEROQUEL [Suspect]
     Route: 048
     Dates: start: 20040828
  10. CYMBALTA [Concomitant]
     Dates: start: 20060101
  11. LEXAPRO [Concomitant]
     Dosage: 10 MG - 40 MG
     Route: 048
     Dates: start: 20030502
  12. LEXAPRO [Concomitant]
     Dates: start: 20040101, end: 20060101
  13. WELLBUTRIN [Concomitant]
     Dates: start: 20040828
  14. HYDROCHLOROTHIAZIDE [Concomitant]
     Dates: start: 20050405

REACTIONS (4)
  - DIABETES MELLITUS [None]
  - DRUG EXPOSURE DURING PREGNANCY [None]
  - GESTATIONAL DIABETES [None]
  - TYPE 2 DIABETES MELLITUS [None]
